FAERS Safety Report 6942539-0 (Version None)
Quarter: 2010Q3

REPORT INFORMATION
  Report Type: 
  Country: None (occurrence: None)
  Receive Date: 20100817
  Receipt Date: 20100427
  Transmission Date: 20110219
  Serious: Yes (Other)
  Sender: FDA-Public Use
  Company Number: 20108614

PATIENT
  Age: 23 Year
  Sex: Female

DRUGS (1)
  1. LIORESAL [Suspect]
     Indication: MUSCLE SPASTICITY
     Dosage: 431.7MCG, DAILY, INTRATHECAL
     Route: 037

REACTIONS (7)
  - DRUG WITHDRAWAL SYNDROME [None]
  - EMERGENCY CARE [None]
  - MEDICAL DEVICE COMPLICATION [None]
  - MUSCLE RIGIDITY [None]
  - MUSCLE SPASTICITY [None]
  - PYREXIA [None]
  - REBOUND EFFECT [None]
